FAERS Safety Report 7320399-6 (Version None)
Quarter: 2011Q1

REPORT INFORMATION
  Report Type: 
  Country: None (occurrence: None)
  Receive Date: 20110228
  Receipt Date: 20110221
  Transmission Date: 20110831
  Serious: Yes (Other)
  Sender: FDA-Public Use
  Company Number: A0896423A

PATIENT
  Age: 75 Year
  Sex: Female

DRUGS (3)
  1. UNSPECIFIED MEDICATION [Concomitant]
  2. VERAPAMIL [Concomitant]
  3. ADVAIR DISKUS 100/50 [Suspect]
     Indication: CHRONIC OBSTRUCTIVE PULMONARY DISEASE
     Dosage: 1PUFF TWICE PER DAY
     Route: 055
     Dates: start: 20050301

REACTIONS (3)
  - VISUAL IMPAIRMENT [None]
  - BLINDNESS UNILATERAL [None]
  - VISION BLURRED [None]
